FAERS Safety Report 21393997 (Version 1)
Quarter: 2022Q3

REPORT INFORMATION
  Report Type: Other
  Country: GB (occurrence: GB)
  Receive Date: 20220930
  Receipt Date: 20220930
  Transmission Date: 20221026
  Serious: No
  Sender: FDA-Public Use
  Company Number: GB-MHRA-MED-202209131727392320-NMYFQ

PATIENT
  Age: 24 Year
  Sex: Female

DRUGS (2)
  1. SERTRALINE [Suspect]
     Active Substance: SERTRALINE HYDROCHLORIDE
     Indication: Depression
     Dosage: UNK (STARTED ON 50MG FOR FEW WEEKS, THEN RECENTLY INCREASED TO 100MG) (TABLET, UNCOATED)
     Route: 048
     Dates: start: 202208
  2. SERTRALINE [Suspect]
     Active Substance: SERTRALINE HYDROCHLORIDE
     Indication: Anxiety
     Dosage: UNK (STARTED ON 50MG FOR FEW WEEKS, THEN RECENTLY INCREASED TO 100MG) (TABLET, UNCOATED)
     Route: 048

REACTIONS (1)
  - Alopecia [Not Recovered/Not Resolved]
